FAERS Safety Report 4432539-7 (Version None)
Quarter: 2004Q3

REPORT INFORMATION
  Report Type: 
  Country: None (occurrence: None)
  Receive Date: 20040820
  Receipt Date: 20040805
  Transmission Date: 20050211
  Serious: Yes (Death, Other)
  Sender: FDA-Public Use
  Company Number: USA-2004-0016331

PATIENT
  Age: 47 Year
  Sex: Male

DRUGS (1)
  1. OXYCONTIN [Suspect]
     Indication: PAIN
     Dosage: MG

REACTIONS (4)
  - ABNORMAL BEHAVIOUR [None]
  - CARDIAC FAILURE [None]
  - COUGH [None]
  - PNEUMOTHORAX [None]
